FAERS Safety Report 12664701 (Version 1)
Quarter: 2016Q3

REPORT INFORMATION
  Report Type: Spontaneous
  Country: CA (occurrence: CA)
  Receive Date: 20160818
  Receipt Date: 20160818
  Transmission Date: 20161109
  Serious: Yes (Life-Threatening, Disabling, Other)
  Sender: FDA-Public Use
  Company Number: PHHY2016CA111912

PATIENT
  Age: 35 Year
  Sex: Male

DRUGS (1)
  1. CLARITHROMYCIN SANDOZ [Suspect]
     Active Substance: CLARITHROMYCIN
     Indication: HELICOBACTER INFECTION
     Dosage: 250 MG, BID
     Route: 048

REACTIONS (2)
  - Nervous system disorder [Recovering/Resolving]
  - General physical condition abnormal [Recovering/Resolving]
